FAERS Safety Report 19056087 (Version 1)
Quarter: 2021Q1

REPORT INFORMATION
  Report Type: Report from Study
  Country: US (occurrence: US)
  Receive Date: 20210324
  Receipt Date: 20210324
  Transmission Date: 20210420
  Serious: Yes (Hospitalization)
  Sender: FDA-Public Use
  Company Number: US-SHIRE-US202031309

PATIENT
  Sex: Male

DRUGS (8)
  1. TEDUGLUTIDE [Suspect]
     Active Substance: TEDUGLUTIDE
     Indication: SHORT-BOWEL SYNDROME
     Dosage: 2.75 MILLIGRAM, 1X/DAY:QD
     Route: 058
     Dates: start: 20190918
  2. TEDUGLUTIDE [Suspect]
     Active Substance: TEDUGLUTIDE
     Indication: SHORT-BOWEL SYNDROME
     Dosage: 2.75 MILLIGRAM, 1X/DAY:QD
     Route: 058
     Dates: start: 20190918
  3. TEDUGLUTIDE [Suspect]
     Active Substance: TEDUGLUTIDE
     Indication: SHORT-BOWEL SYNDROME
     Dosage: 2.75 MILLIGRAM, 1X/DAY:QD
     Route: 058
     Dates: start: 20190918
  4. TEDUGLUTIDE [Suspect]
     Active Substance: TEDUGLUTIDE
     Dosage: 0.275 INJECT, QD
     Route: 058
     Dates: start: 20151105
  5. TEDUGLUTIDE [Suspect]
     Active Substance: TEDUGLUTIDE
     Dosage: 0.275 INJECT, QD
     Route: 058
     Dates: start: 20151105
  6. TEDUGLUTIDE [Suspect]
     Active Substance: TEDUGLUTIDE
     Indication: SHORT-BOWEL SYNDROME
     Dosage: 2.75 MILLIGRAM, 1X/DAY:QD
     Route: 058
     Dates: start: 20190918
  7. TEDUGLUTIDE [Suspect]
     Active Substance: TEDUGLUTIDE
     Dosage: 0.275 INJECT, QD
     Route: 058
     Dates: start: 20151105
  8. TEDUGLUTIDE [Suspect]
     Active Substance: TEDUGLUTIDE
     Dosage: 0.275 INJECT, QD
     Route: 058
     Dates: start: 20151105

REACTIONS (2)
  - Epistaxis [Unknown]
  - Ulcer [Unknown]
